FAERS Safety Report 21338517 (Version 2)
Quarter: 2022Q4

REPORT INFORMATION
  Report Type: Spontaneous
  Country: FR (occurrence: FR)
  Receive Date: 20220915
  Receipt Date: 20221001
  Transmission Date: 20230113
  Serious: Yes (Hospitalization)
  Sender: FDA-Public Use
  Company Number: FR-TEVA-2022-FR-2072311

PATIENT
  Age: 69 Year
  Sex: Male

DRUGS (5)
  1. MYCOPHENOLATE MOFETIL [Suspect]
     Active Substance: MYCOPHENOLATE MOFETIL
     Indication: Immunosuppressant drug therapy
     Dosage: 500 MILLIGRAM DAILY;
     Route: 065
  2. TACROLIMUS [Interacting]
     Active Substance: TACROLIMUS
     Indication: Immunosuppressant drug therapy
     Dosage: 4 MILLIGRAM DAILY;
     Route: 065
  3. TACROLIMUS [Interacting]
     Active Substance: TACROLIMUS
     Indication: Immunosuppressant drug therapy
     Dosage: 10 MILLIGRAM DAILY;
     Route: 065
  4. ISAVUCONAZOLE [Interacting]
     Active Substance: ISAVUCONAZOLE
     Indication: Alternaria infection
     Dosage: LOADING DOSE: THREE TIMES DAILY
     Route: 048
  5. ISAVUCONAZOLE [Interacting]
     Active Substance: ISAVUCONAZOLE
     Dosage: 200 MILLIGRAM DAILY;
     Route: 048

REACTIONS (9)
  - Skin mass [Recovered/Resolved]
  - Alternaria infection [Recovered/Resolved]
  - Drug interaction [Unknown]
  - Overdose [Unknown]
  - Tremor [Unknown]
  - Diarrhoea [Unknown]
  - Acute kidney injury [Unknown]
  - Sinus tachycardia [Unknown]
  - Off label use [Unknown]
